FAERS Safety Report 12076244 (Version 1)
Quarter: 2016Q1

REPORT INFORMATION
  Report Type: Spontaneous
  Country: DE (occurrence: DE)
  Receive Date: 20160215
  Receipt Date: 20160215
  Transmission Date: 20160526
  Serious: Yes (Hospitalization)
  Sender: FDA-Public Use
  Company Number: DE-ROCHE-1686180

PATIENT
  Sex: Male

DRUGS (11)
  1. TORASEMIDE [Concomitant]
     Active Substance: TORSEMIDE
  2. NEULASTA [Suspect]
     Active Substance: PEGFILGRASTIM
     Indication: B-CELL LYMPHOMA
     Route: 058
     Dates: start: 20150817, end: 20151117
  3. LEVOTHYROXINE SODIUM. [Concomitant]
     Active Substance: LEVOTHYROXINE SODIUM
  4. DOXORUBICINE [Suspect]
     Active Substance: DOXORUBICIN
     Indication: B-CELL LYMPHOMA
     Dosage: LAST DOSE PRIOR TO SAE 05/NOV/2015.
     Route: 042
     Dates: start: 20150813, end: 20151105
  5. PANTOPRAZOLE SODIUM. [Concomitant]
     Active Substance: PANTOPRAZOLE SODIUM
  6. PREDNISONE. [Suspect]
     Active Substance: PREDNISONE
     Indication: B-CELL LYMPHOMA
     Dosage: LAST DOSE PRIOR TO SAE 05/NOV/2015.
     Route: 048
     Dates: start: 20150813, end: 20151105
  7. CYCLOPHOSPHAMIDE. [Suspect]
     Active Substance: CYCLOPHOSPHAMIDE
     Indication: B-CELL LYMPHOMA
     Dosage: LAST DOSE PRIOR TO SAE 05/NOV/2015.
     Route: 042
     Dates: start: 20150813, end: 20151105
  8. VINCRISTINE [Suspect]
     Active Substance: VINCRISTINE
     Indication: B-CELL LYMPHOMA
     Dosage: LAST DOSE PRIOR TO SAE 05/NOV/2015.
     Route: 042
     Dates: start: 20150813, end: 20151105
  9. RITUXIMAB [Suspect]
     Active Substance: RITUXIMAB
     Indication: B-CELL LYMPHOMA
     Route: 042
     Dates: start: 20150812, end: 20151104
  10. ACETYLSALICYLIC ACID [Concomitant]
     Active Substance: ASPIRIN
  11. AMLODIPINE [Concomitant]
     Active Substance: AMLODIPINE BESYLATE

REACTIONS (1)
  - Pulmonary embolism [Recovered/Resolved]

NARRATIVE: CASE EVENT DATE: 20151115
